FAERS Safety Report 25205710 (Version 1)
Quarter: 2025Q2

REPORT INFORMATION
  Report Type: Report from Study
  Country: PY (occurrence: PY)
  Receive Date: 20250417
  Receipt Date: 20250417
  Transmission Date: 20250717
  Serious: Yes (Death)
  Sender: ROCHE
  Company Number: PY-ROCHE-10000261099

PATIENT
  Age: 71 Year
  Sex: Male

DRUGS (1)
  1. ACTEMRA [Suspect]
     Active Substance: TOCILIZUMAB
     Indication: Rheumatoid arthritis
     Dosage: DOSE AND STRENGTH: 162 MG/0.9 ML
     Route: 058
     Dates: start: 20240802

REACTIONS (1)
  - Multiple organ dysfunction syndrome [Fatal]
